FAERS Safety Report 21035982 (Version 1)
Quarter: 2022Q3

REPORT INFORMATION
  Report Type: Spontaneous
  Country: GR (occurrence: GR)
  Receive Date: 20220701
  Receipt Date: 20220701
  Transmission Date: 20221027
  Serious: Yes (Other)
  Sender: FDA-Public Use
  Company Number: GR-PFIZER INC-202200893216

PATIENT
  Age: 38 Year
  Sex: Female

DRUGS (4)
  1. METHYLPREDNISOLONE SODIUM SUCCINATE [Suspect]
     Active Substance: METHYLPREDNISOLONE SODIUM SUCCINATE
     Indication: Multiple sclerosis relapse
     Dosage: 1 G, DAILY
  2. METHYLPREDNISOLONE SODIUM SUCCINATE [Suspect]
     Active Substance: METHYLPREDNISOLONE SODIUM SUCCINATE
     Indication: Autoimmune hepatitis
     Dosage: 100 MG
     Route: 042
  3. CYCLOSPORINE [Concomitant]
     Active Substance: CYCLOSPORINE
     Indication: Autoimmune hepatitis
     Dosage: 100 MG
  4. PREDNISOLONE [Concomitant]
     Active Substance: PREDNISOLONE
     Indication: Autoimmune hepatitis
     Dosage: 7.5 MG

REACTIONS (4)
  - Autoimmune hepatitis [Recovered/Resolved]
  - Condition aggravated [Recovered/Resolved]
  - Therapeutic product effect decreased [Unknown]
  - Off label use [Unknown]
